FAERS Safety Report 18312070 (Version 1)
Quarter: 2020Q3

REPORT INFORMATION
  Report Type: Spontaneous
  Country: US (occurrence: US)
  Receive Date: 20200924
  Receipt Date: 20200924
  Transmission Date: 20201103
  Serious: Yes (Death)
  Sender: FDA-Public Use
  Company Number: None

PATIENT
  Age: 92 Year
  Sex: Male
  Weight: 67 kg

DRUGS (1)
  1. AMIODARONE (AMIODARONE HYDROCHLORIDE) [Suspect]
     Active Substance: AMIODARONE HYDROCHLORIDE
     Indication: ATRIAL FIBRILLATION
     Route: 048
     Dates: start: 20060622, end: 20200619

REACTIONS (14)
  - Acute respiratory distress syndrome [None]
  - Oxygen saturation decreased [None]
  - Pulmonary alveolar haemorrhage [None]
  - Toxicity to various agents [None]
  - Respiratory depression [None]
  - Pulmonary oedema [None]
  - Pneumonia [None]
  - Interstitial lung disease [None]
  - Tachypnoea [None]
  - Hypertension [None]
  - Hypoxia [None]
  - Anticoagulation drug level above therapeutic [None]
  - Respiratory failure [None]
  - Haemoptysis [None]

NARRATIVE: CASE EVENT DATE: 20200619
